FAERS Safety Report 6494622-4 (Version None)
Quarter: 2009Q4

REPORT INFORMATION
  Report Type: 
  Country: None (occurrence: None)
  Receive Date: 20091214
  Receipt Date: 20090310
  Transmission Date: 20100525
  Serious: No
  Sender: FDA-Public Use
  Company Number: US-BRISTOL-MYERS SQUIBB COMPANY-14538193

PATIENT
  Age: 29 Year
  Sex: Female

DRUGS (4)
  1. ABILIFY [Suspect]
     Indication: PSYCHOTIC DISORDER
     Dates: start: 20090201
  2. LITHIUM [Concomitant]
  3. ZOLOFT [Concomitant]
  4. VALPROIC ACID [Concomitant]

REACTIONS (1)
  - BLOOD ALBUMIN DECREASED [None]
